FAERS Safety Report 5909539-0 (Version None)
Quarter: 2008Q4

REPORT INFORMATION
  Report Type: 
  Country: None (occurrence: None)
  Receive Date: 20081002
  Receipt Date: 20080916
  Transmission Date: 20090506
  Serious: Yes (Hospitalization)
  Sender: FDA-Public Use
  Company Number: DSA_32447_2008

PATIENT
  Sex: Female

DRUGS (5)
  1. TAVOR /00273201/ (TAVOR - LORAZEPAM) 1 MG (NOT SPECIFIED) [Suspect]
     Dosage: (8 MG 1X NOT THE PRESCRIBED AMOUNT ORAL)
     Route: 048
     Dates: start: 20080916, end: 20080916
  2. VIVINOX (VIVINOX - DIPHENYDRAMINE HYDROCHLORIDE) (NOT SPECIFIED) [Suspect]
     Dosage: (NOT THE PRESCRIBED AMOUNT ORAL)
     Route: 048
     Dates: start: 20080916, end: 20080916
  3. VIVINOX (VIVINOX - HUMULUS LUPULUS) (NOT SPECIFIED) [Suspect]
     Dosage: (NOT THE PRESCRIBED AMOUNT ORAL)
     Route: 048
     Dates: start: 20080916, end: 20080916
  4. VIVINOX (VIVINOX - PASSIFLORA) (NOT SPECIFIED) [Suspect]
     Dosage: (NOT THE PRESCRIBED AMOUNT ORAL)
     Route: 048
     Dates: start: 20080916, end: 20080916
  5. VIVINOX (VIVINOX - VALERIAN)  (NOT SPECIFIED) [Suspect]
     Dosage: (NOT THE PRESCRIBED AMOUNT ORAL)
     Route: 048
     Dates: start: 20080916, end: 20080916

REACTIONS (4)
  - BODY TEMPERATURE DECREASED [None]
  - DEPRESSED LEVEL OF CONSCIOUSNESS [None]
  - MULTIPLE DRUG OVERDOSE INTENTIONAL [None]
  - SUICIDE ATTEMPT [None]
